FAERS Safety Report 19942236 (Version 1)
Quarter: 2021Q4

REPORT INFORMATION
  Report Type: Spontaneous
  Country: US (occurrence: US)
  Receive Date: 20211011
  Receipt Date: 20211011
  Transmission Date: 20220303
  Serious: No
  Sender: FDA-Public Use
  Company Number: None

PATIENT
  Sex: Female

DRUGS (21)
  1. AMBRISENTAN [Suspect]
     Active Substance: AMBRISENTAN
     Indication: Pulmonary arterial hypertension
     Route: 048
  2. PANTOPRAZOLE SODIUM [Concomitant]
     Active Substance: PANTOPRAZOLE SODIUM
  3. TADALAFIL [Suspect]
     Active Substance: TADALAFIL
  4. CALCIUM [Concomitant]
     Active Substance: CALCIUM
  5. ASPIRIN 81 LOW DOSE [Concomitant]
  6. METAMUCIL [Concomitant]
     Active Substance: PLANTAGO SEED
  7. METFORMIN HYDROCHLORIDE [Concomitant]
     Active Substance: METFORMIN HYDROCHLORIDE
  8. KEPPRA [Concomitant]
     Active Substance: LEVETIRACETAM
  9. VITAMIN D3 [Concomitant]
     Active Substance: CHOLECALCIFEROL
  10. LASIX [Concomitant]
     Active Substance: FUROSEMIDE
  11. POTASSIUM [Concomitant]
     Active Substance: POTASSIUM
  12. PROBIOTIC ACIDOPHILUS SUP [Concomitant]
  13. UPTRAVI [Suspect]
     Active Substance: SELEXIPAG
  14. VITAMIN C [Concomitant]
     Active Substance: ASCORBIC ACID
  15. LIPITOR [Concomitant]
     Active Substance: ATORVASTATIN CALCIUM
  16. ARANESP ALBUMIN FREE [Concomitant]
  17. ZINC [Concomitant]
     Active Substance: ZINC
  18. MAGNESIUM [Concomitant]
     Active Substance: MAGNESIUM
  19. VITAMIN B12 [Concomitant]
     Active Substance: CYANOCOBALAMIN
  20. REMODULIN [Suspect]
     Active Substance: TREPROSTINIL
  21. FOLIC ACID [Concomitant]
     Active Substance: FOLIC ACID

REACTIONS (8)
  - Anaemia [None]
  - Hot flush [None]
  - Gait disturbance [None]
  - Headache [None]
  - Pain in jaw [None]
  - Drug ineffective [None]
  - Drug ineffective [None]
  - Vaccination complication [None]
